FAERS Safety Report 22164130 (Version 1)
Quarter: 2023Q2

REPORT INFORMATION
  Report Type: Report from Study
  Country: CO (occurrence: CO)
  Receive Date: 20230402
  Receipt Date: 20230402
  Transmission Date: 20230722
  Serious: Yes (Hospitalization, Other)
  Sender: FDA-Public Use
  Company Number: CO-ABBVIE-4712287

PATIENT
  Age: 74 Year
  Sex: Male
  Weight: 85 kg

DRUGS (4)
  1. HUMIRA [Suspect]
     Active Substance: ADALIMUMAB
     Indication: Rheumatoid arthritis
     Route: 058
     Dates: end: 2023
  2. HUMIRA [Suspect]
     Active Substance: ADALIMUMAB
     Route: 058
     Dates: start: 20230223, end: 20230310
  3. BISACODYL [Concomitant]
     Active Substance: BISACODYL
     Indication: General symptom
     Dosage: 1 SACHET
     Route: 048
     Dates: start: 202301, end: 202303
  4. Evalax? [Concomitant]
     Indication: General symptom
     Dosage: 1 SACHET
     Route: 048
     Dates: start: 202301, end: 202303

REACTIONS (4)
  - Abdominal pain [Not Recovered/Not Resolved]
  - Psoriasis [Not Recovered/Not Resolved]
  - Pancreatic mass [Not Recovered/Not Resolved]
  - Constipation [Not Recovered/Not Resolved]

NARRATIVE: CASE EVENT DATE: 20230101
